FAERS Safety Report 9666355 (Version 1)
Quarter: 2013Q4

REPORT INFORMATION
  Report Type: Spontaneous
  Country: RU (occurrence: RU)
  Receive Date: 20131104
  Receipt Date: 20131104
  Transmission Date: 20140711
  Serious: Yes (Death, Other)
  Sender: FDA-Public Use
  Company Number: RU-ASTRAZENECA-2013SE80697

PATIENT
  Age: 77 Year
  Sex: Female
  Weight: 59 kg

DRUGS (9)
  1. BRILINTA [Suspect]
     Indication: ACUTE MYOCARDIAL INFARCTION
     Route: 048
     Dates: start: 20130614, end: 20130616
  2. HEPARIN [Concomitant]
     Route: 003
  3. EGILOK [Concomitant]
     Route: 048
  4. ENALAPRIL [Concomitant]
     Route: 048
  5. OMEZ [Concomitant]
     Route: 048
  6. ATORVASTATIN [Concomitant]
     Route: 048
  7. SIBAZON [Concomitant]
     Route: 030
  8. NOZEPAM [Concomitant]
  9. NITROGLYCERIN [Concomitant]
     Route: 041

REACTIONS (2)
  - Death [Fatal]
  - Acute myocardial infarction [Unknown]
